FAERS Safety Report 6809434-9 (Version None)
Quarter: 2010Q2

REPORT INFORMATION
  Report Type: 
  Country: None (occurrence: None)
  Receive Date: 20100630
  Receipt Date: 20100621
  Transmission Date: 20101027
  Serious: Yes (Death)
  Sender: FDA-Public Use
  Company Number: US-NAPPMUNDI-USA-2010-0044639

PATIENT
  Sex: Male

DRUGS (1)
  1. OXYCONTIN [Suspect]
     Indication: PANCREATIC CARCINOMA
     Dosage: 40 MG, TID

REACTIONS (1)
  - MALIGNANT NEOPLASM PROGRESSION [None]
